FAERS Safety Report 25465879 (Version 3)
Quarter: 2025Q2

REPORT INFORMATION
  Report Type: Spontaneous
  Country: US (occurrence: US)
  Receive Date: 20250623
  Receipt Date: 20250630
  Transmission Date: 20250717
  Serious: No
  Sender: ELI LILLY AND COMPANY
  Company Number: US-ELI_LILLY_AND_COMPANY-US202506017010

PATIENT
  Age: 48 Year

DRUGS (16)
  1. ZEPBOUND [Suspect]
     Active Substance: TIRZEPATIDE
     Indication: Weight control
     Route: 058
     Dates: start: 202502
  2. ZEPBOUND [Suspect]
     Active Substance: TIRZEPATIDE
     Indication: Weight control
     Route: 058
     Dates: start: 202502
  3. ZEPBOUND [Suspect]
     Active Substance: TIRZEPATIDE
     Indication: Weight control
     Route: 058
     Dates: start: 202502
  4. ZEPBOUND [Suspect]
     Active Substance: TIRZEPATIDE
     Indication: Weight control
     Route: 058
     Dates: start: 202502
  5. ZEPBOUND [Suspect]
     Active Substance: TIRZEPATIDE
     Indication: Alcoholism
  6. ZEPBOUND [Suspect]
     Active Substance: TIRZEPATIDE
     Indication: Alcoholism
  7. ZEPBOUND [Suspect]
     Active Substance: TIRZEPATIDE
     Indication: Alcoholism
  8. ZEPBOUND [Suspect]
     Active Substance: TIRZEPATIDE
     Indication: Alcoholism
  9. ZEPBOUND [Suspect]
     Active Substance: TIRZEPATIDE
     Indication: Weight control
     Route: 058
  10. ZEPBOUND [Suspect]
     Active Substance: TIRZEPATIDE
     Indication: Weight control
     Route: 058
  11. ZEPBOUND [Suspect]
     Active Substance: TIRZEPATIDE
     Indication: Weight control
     Route: 058
  12. ZEPBOUND [Suspect]
     Active Substance: TIRZEPATIDE
     Indication: Weight control
     Route: 058
  13. ZEPBOUND [Suspect]
     Active Substance: TIRZEPATIDE
     Indication: Alcoholism
  14. ZEPBOUND [Suspect]
     Active Substance: TIRZEPATIDE
     Indication: Alcoholism
  15. ZEPBOUND [Suspect]
     Active Substance: TIRZEPATIDE
     Indication: Alcoholism
  16. ZEPBOUND [Suspect]
     Active Substance: TIRZEPATIDE
     Indication: Alcoholism

REACTIONS (4)
  - Depression [Not Recovered/Not Resolved]
  - Extra dose administered [Not Recovered/Not Resolved]
  - Lymphocyte count decreased [Unknown]
  - Injection site haemorrhage [Recovered/Resolved]

NARRATIVE: CASE EVENT DATE: 20250101
